FAERS Safety Report 5824046-1 (Version None)
Quarter: 2008Q3

REPORT INFORMATION
  Report Type: 
  Country: None (occurrence: None)
  Receive Date: 20080728
  Receipt Date: 20080724
  Transmission Date: 20090109
  Serious: Yes (Other)
  Sender: FDA-Public Use
  Company Number: BA-BRISTOL-MYERS SQUIBB COMPANY-14267249

PATIENT
  Age: 72 Year
  Sex: Male

DRUGS (1)
  1. VEPESID [Suspect]
     Indication: GASTRIC CANCER
     Dosage: THERAPY INITIATED ON 30-JUN-2008.
     Route: 042
     Dates: start: 20080702, end: 20080702

REACTIONS (1)
  - BACK PAIN [None]
